FAERS Safety Report 24020361 (Version 1)
Quarter: 2024Q2

REPORT INFORMATION
  Report Type: Spontaneous
  Country: US (occurrence: US)
  Receive Date: 20240627
  Receipt Date: 20240627
  Transmission Date: 20240716
  Serious: Yes (Life-Threatening, Other)
  Sender: FDA-Public Use
  Company Number: US-MLMSERVICE-20240613-PI097701-00132-1

PATIENT
  Age: 69 Year
  Sex: Male

DRUGS (4)
  1. EPINEPHRINE [Suspect]
     Active Substance: EPINEPHRINE
     Indication: Cardiogenic shock
     Dosage: FREQ:1 MIN;UP TO 8 MCG/MIN OVER A TIME COURSE OF MINUTES
  2. ADENOSINE [Concomitant]
     Active Substance: ADENOSINE
     Dosage: UNK
  3. SODIUM CHLORIDE [Concomitant]
     Active Substance: SODIUM CHLORIDE
     Dosage: BOLUS
  4. ATENOLOL [Concomitant]
     Active Substance: ATENOLOL

REACTIONS (1)
  - Lactic acidosis [Recovering/Resolving]
